FAERS Safety Report 7776477-0 (Version None)
Quarter: 2011Q3

REPORT INFORMATION
  Report Type: 
  Country: None (occurrence: None)
  Receive Date: 20110926
  Receipt Date: 20110919
  Transmission Date: 20111222
  Serious: Yes (Hospitalization, Other)
  Sender: FDA-Public Use
  Company Number: US-TEVA-301403USA

PATIENT
  Age: 10 Year
  Sex: Male

DRUGS (2)
  1. ETHOSUXIMIDE [Suspect]
     Dosage: 1000 MILLIGRAM;
  2. ETHOSUXIMIDE [Suspect]
     Indication: EPILEPSY
     Dosage: 1500 MILLIGRAM;

REACTIONS (2)
  - SUICIDAL IDEATION [None]
  - MANIA [None]
